FAERS Safety Report 7037630-7 (Version None)
Quarter: 2010Q4

REPORT INFORMATION
  Report Type: 
  Country: None (occurrence: None)
  Receive Date: 20101011
  Receipt Date: 20101005
  Transmission Date: 20110411
  Serious: Yes (Death)
  Sender: FDA-Public Use
  Company Number: PHHY2010US66097

PATIENT
  Sex: Female

DRUGS (19)
  1. GLEEVEC [Suspect]
     Indication: ACUTE LYMPHOCYTIC LEUKAEMIA
     Dosage: 400 MG, QD
     Route: 048
     Dates: start: 20091001
  2. GLEEVEC [Suspect]
     Dosage: 400 MG, QD
     Dates: start: 20100615
  3. GLEEVEC [Suspect]
     Dosage: 400 MG, QD
     Dates: start: 20100702
  4. GLEEVEC [Suspect]
     Dosage: 400 MG, QD
     Dates: start: 20100825
  5. PREDNISONE [Concomitant]
     Dosage: 30 MG
     Dates: start: 20100331
  6. PREDNISONE [Concomitant]
     Dosage: 20 MG
     Dates: start: 20100506
  7. PREDNISONE [Concomitant]
     Dosage: 10 MG, UNK
     Dates: start: 20100729
  8. BUMEX [Concomitant]
     Dosage: 120 UNK, BID
     Dates: start: 20100729
  9. DARVON [Concomitant]
     Dosage: 65 UNK, UNK
     Dates: start: 20090925
  10. DIOVAN [Concomitant]
     Dosage: 80 MG, UNK
     Dates: start: 20090925
  11. POTASSIUM CHLORIDE [Concomitant]
     Dosage: 20 MEQ
     Dates: start: 20100506
  12. POTASSIUM CHLORIDE [Concomitant]
     Dosage: UNK
     Dates: start: 20100331
  13. OXYCONTIN [Concomitant]
     Dosage: UNK
     Dates: start: 20100331
  14. PROTONIX [Concomitant]
     Dosage: UNK
     Dates: start: 20100925
  15. TASIGNA [Concomitant]
     Dosage: 2 TAB BID
     Dates: start: 20100929
  16. HYDREA [Concomitant]
     Dosage: 500 MG, UNK
     Dates: start: 20090914
  17. HYDREA [Concomitant]
     Dosage: 1000 MG, UNK
  18. LASIX [Concomitant]
     Dosage: UNK
     Dates: start: 20100513
  19. LASIX [Concomitant]
     Dosage: 40 MG, UNK
     Dates: start: 20100506

REACTIONS (10)
  - ACUTE LYMPHOCYTIC LEUKAEMIA [None]
  - ARTHRALGIA [None]
  - ASTHENIA [None]
  - DYSPNOEA [None]
  - FEELING ABNORMAL [None]
  - MALIGNANT NEOPLASM PROGRESSION [None]
  - MUSCULOSKELETAL DISCOMFORT [None]
  - NAUSEA [None]
  - NIGHT SWEATS [None]
  - OEDEMA PERIPHERAL [None]
